FAERS Safety Report 17550966 (Version 2)
Quarter: 2020Q1

REPORT INFORMATION
  Report Type: Spontaneous
  Country: DE (occurrence: DE)
  Receive Date: 20200317
  Receipt Date: 20200330
  Transmission Date: 20200409
  Serious: Yes (Hospitalization, Other)
  Sender: FDA-Public Use
  Company Number: DE-ACTELION-A-CH2019-192864

PATIENT
  Age: 76 Year
  Sex: Female
  Weight: 63 kg

DRUGS (16)
  1. INUVAIR [Concomitant]
     Active Substance: BECLOMETHASONE DIPROPIONATE\FORMOTEROL FUMARATE
     Dosage: 2 DF, BID
  2. SPIRIVA [Concomitant]
     Active Substance: TIOTROPIUM BROMIDE MONOHYDRATE
     Dosage: 1 DF, QD
  3. SALBUTAMOL [Concomitant]
     Active Substance: ALBUTEROL
     Dosage: 2.5 MG, QID
     Route: 055
  4. ATACAND [Concomitant]
     Active Substance: CANDESARTAN CILEXETIL
     Dosage: 16 MG, BID
     Route: 048
  5. ADCIRCA [Concomitant]
     Active Substance: TADALAFIL
     Indication: PULMONARY ARTERIAL HYPERTENSION
     Dosage: 40 MG, QD
     Route: 048
     Dates: start: 2013
  6. OPSUMIT [Concomitant]
     Active Substance: MACITENTAN
     Indication: PULMONARY ARTERIAL HYPERTENSION
     Dosage: 10 MG, QD
     Route: 048
  7. EPLERENONE. [Concomitant]
     Active Substance: EPLERENONE
     Dosage: 20 MG, BID
  8. ELIQUIS [Concomitant]
     Active Substance: APIXABAN
     Indication: THROMBOSIS PROPHYLAXIS
     Dosage: .5 MG, BID
  9. DEKRISTOL [Concomitant]
     Active Substance: CHOLECALCIFEROL
     Dosage: 200000 UNITS EVERY 14 DAYS
  10. TORASEMID [Concomitant]
     Active Substance: TORSEMIDE
     Dosage: 20 MG, BID
     Route: 048
  11. OXYGEN. [Concomitant]
     Active Substance: OXYGEN
     Indication: CHRONIC OBSTRUCTIVE PULMONARY DISEASE
     Route: 055
  12. ARIXTRA [Concomitant]
     Active Substance: FONDAPARINUX SODIUM
     Indication: THROMBOSIS PROPHYLAXIS
     Dosage: UNK
     Dates: end: 20200219
  13. UPTRAVI [Suspect]
     Active Substance: SELEXIPAG
     Dosage: 400 MCG, BID
     Route: 048
     Dates: start: 202002
  14. PANTOPRAZOL [Concomitant]
     Active Substance: PANTOPRAZOLE SODIUM
     Dosage: 40 MG, QD
     Route: 048
  15. UPTRAVI [Suspect]
     Active Substance: SELEXIPAG
     Indication: PULMONARY ARTERIAL HYPERTENSION
     Dosage: 1000 MCG, BID
     Route: 048
     Dates: start: 20190620, end: 20200219
  16. ATROVENT [Concomitant]
     Active Substance: IPRATROPIUM BROMIDE
     Dosage: 500 MCG, QID
     Route: 055

REACTIONS (19)
  - Arthralgia [Not Recovered/Not Resolved]
  - Weight decreased [Recovering/Resolving]
  - PCO2 increased [Unknown]
  - Hypotension [Unknown]
  - Normochromic normocytic anaemia [Unknown]
  - Respiratory failure [Unknown]
  - Transfusion [Unknown]
  - Cardiac failure [Unknown]
  - Myalgia [Not Recovered/Not Resolved]
  - Concomitant disease aggravated [Unknown]
  - Nausea [Not Recovered/Not Resolved]
  - Dyspnoea [Unknown]
  - Haemoglobin decreased [Unknown]
  - Pericardial effusion [Unknown]
  - Headache [Not Recovered/Not Resolved]
  - Cardiac failure chronic [Unknown]
  - Diarrhoea [Recovering/Resolving]
  - Depressed level of consciousness [Unknown]
  - Left ventricular failure [Unknown]

NARRATIVE: CASE EVENT DATE: 20190627
